FAERS Safety Report 8973138 (Version 4)
Quarter: 2013Q4

REPORT INFORMATION
  Report Type: Report from Study
  Country: DE (occurrence: DE)
  Receive Date: 20121218
  Receipt Date: 20131106
  Transmission Date: 20140711
  Serious: Yes (Hospitalization)
  Sender: FDA-Public Use
  Company Number: DE-AMGEN-DEUCT2012076659

PATIENT
  Age: 58 Year
  Sex: Female
  Weight: 63 kg

DRUGS (5)
  1. ETANERCEPT [Suspect]
     Indication: RHEUMATOID ARTHRITIS
     Dosage: 50 MG, WEEKLY
     Route: 065
     Dates: start: 20111129, end: 20120305
  2. ETANERCEPT [Suspect]
     Dosage: UNK
     Route: 065
     Dates: start: 20120414
  3. KINZALKOMB [Concomitant]
     Indication: HYPERTENSION
     Dosage: 1 DF, 1X/DAY
     Dates: start: 2001
  4. METOHEXAL                          /00376902/ [Concomitant]
     Indication: HYPERTENSION
     Dosage: 1 - 0.5, UNK
     Dates: start: 2001
  5. ALLOPURINOL [Concomitant]
     Indication: HYPERURICAEMIA
     Dosage: 1 DF, 1X/DAY
     Dates: start: 2010

REACTIONS (4)
  - General physical health deterioration [Recovered/Resolved]
  - Nasopharyngitis [Recovered/Resolved]
  - Superinfection bacterial [Recovered/Resolved]
  - Herpes zoster [Recovered/Resolved]
